FAERS Safety Report 24843079 (Version 1)
Quarter: 2025Q1

REPORT INFORMATION
  Report Type: Spontaneous
  Country: US (occurrence: US)
  Receive Date: 20250115
  Receipt Date: 20250115
  Transmission Date: 20250409
  Serious: No
  Sender: HRA PHARMA
  Company Number: US-ORG100014127-2024000302

PATIENT
  Sex: Male

DRUGS (1)
  1. MITOTANE [Suspect]
     Active Substance: MITOTANE
     Indication: Adrenocortical carcinoma
     Route: 048

REACTIONS (8)
  - Irritability [Unknown]
  - Breast pain [Unknown]
  - Malaise [Not Recovered/Not Resolved]
  - Brain fog [Unknown]
  - Somnolence [Unknown]
  - Fatigue [Unknown]
  - Rash [Unknown]
  - Off label use [Unknown]
